FAERS Safety Report 8774367 (Version 1)
Quarter: 2012Q4

REPORT INFORMATION
  Report Type: 
  Country: CN (occurrence: CN)
  Receive Date: 20120907
  Receipt Date: 20120907
  Transmission Date: 20130627
  Serious: Yes (Hospitalization)
  Sender: FDA-Public Use
  Company Number: CN-NOVOPROD-340170

PATIENT
  Age: 48 Year
  Sex: Male

DRUGS (7)
  1. NOVONORM [Suspect]
     Indication: TYPE 2 DIABETES MELLITUS
  2. NOVORAPID [Suspect]
     Indication: TYPE 2 DIABETES MELLITUS
     Dosage: sliding scale
     Route: 042
  3. NOVORAPID [Suspect]
     Dosage: UNK
     Route: 058
  4. NOVORAPID [Suspect]
     Dosage: UNK
     Route: 030
  5. NOVORAPID [Suspect]
     Dosage: 8 U before breakfast, 4 U before lunch and 6 U before supper
  6. NOVOLIN N [Suspect]
     Indication: TYPE 2 DIABETES MELLITUS
  7. SODIUM CHLORIDE [Concomitant]
     Indication: TYPE 2 DIABETES MELLITUS
     Dosage: UNK
     Route: 042

REACTIONS (4)
  - Diabetic ketoacidosis [Unknown]
  - Diabetic nephropathy [Unknown]
  - Drug hypersensitivity [Unknown]
  - Diabetes mellitus inadequate control [Recovered/Resolved]
